FAERS Safety Report 14300261 (Version 1)
Quarter: 2017Q4

REPORT INFORMATION
  Report Type: Spontaneous
  Country: US (occurrence: US)
  Receive Date: 20171219
  Receipt Date: 20171219
  Transmission Date: 20180321
  Serious: No
  Sender: FDA-Public Use
  Company Number: US-TEVA-726998ACC

PATIENT
  Sex: Male

DRUGS (1)
  1. TEVA^S AZITHROMYCIN [Suspect]
     Active Substance: AZITHROMYCIN
     Dosage: 10 ML 1ST DAY AND 5 ML FOR NEXT 4 DAYS
     Route: 048
     Dates: start: 20161128

REACTIONS (2)
  - Dysgeusia [Unknown]
  - Oral discomfort [Unknown]
